FAERS Safety Report 11445650 (Version 2)
Quarter: 2015Q3

REPORT INFORMATION
  Report Type: Spontaneous
  Country: US (occurrence: US)
  Receive Date: 20150902
  Receipt Date: 20150930
  Transmission Date: 20151125
  Serious: No
  Sender: FDA-Public Use
  Company Number: US-B.I. PHARMACEUTICALS,INC./RIDGEFIELD-2015-BI-45910BP

PATIENT
  Age: 76 Year
  Sex: Female
  Weight: 63 kg

DRUGS (6)
  1. ASMANEX [Concomitant]
     Active Substance: MOMETASONE FUROATE
     Indication: ASTHMA
     Dosage: 880 MCG
     Route: 055
     Dates: start: 1990
  2. FLUTICASONE [Concomitant]
     Active Substance: FLUTICASONE\FLUTICASONE PROPIONATE
     Indication: RESPIRATORY DISORDER
     Dosage: 2 ANZ
     Route: 045
     Dates: start: 1990
  3. COMBIVENT [Suspect]
     Active Substance: ALBUTEROL SULFATE\IPRATROPIUM BROMIDE
     Indication: ASTHMA
     Dosage: STRENGTH: 18 MCG / 103 MCG
     Route: 055
     Dates: start: 1990, end: 201507
  4. SINGULAIR [Concomitant]
     Active Substance: MONTELUKAST SODIUM
     Indication: RESPIRATORY DISORDER
     Dosage: 10 MG
     Route: 048
     Dates: start: 2005
  5. DUO NEB [Concomitant]
     Indication: ASTHMA
     Dosage: (INHALATION AEROSOL) STRENGTH: 2.5MG;
     Route: 055
     Dates: start: 1990
  6. COMBIVENT [Suspect]
     Active Substance: ALBUTEROL SULFATE\IPRATROPIUM BROMIDE
     Indication: ASTHMA
     Route: 055
     Dates: start: 20150705

REACTIONS (5)
  - Off label use [Recovered/Resolved]
  - Drug effect decreased [Not Recovered/Not Resolved]
  - Off label use [Unknown]
  - Product quality issue [Recovered/Resolved]
  - Oral discomfort [Not Recovered/Not Resolved]

NARRATIVE: CASE EVENT DATE: 1990
